FAERS Safety Report 5654172-1 (Version None)
Quarter: 2008Q1

REPORT INFORMATION
  Report Type: 
  Country: None (occurrence: None)
  Receive Date: 20080306
  Receipt Date: 20080304
  Transmission Date: 20080703
  Serious: Yes (Hospitalization)
  Sender: FDA-Public Use
  Company Number: IN-BOEHRINGER INGELHEIM GMBH, GERMANY-2008-DE-01352GD

PATIENT
  Age: 34 Year
  Sex: Male

DRUGS (3)
  1. NEVIRAPINE [Suspect]
     Indication: HIV INFECTION
     Dates: start: 20060101
  2. STAVUDINE [Suspect]
     Indication: HIV INFECTION
     Dates: start: 20060101
  3. LAMIVUDINE [Suspect]
     Indication: HIV INFECTION
     Dates: start: 20060101

REACTIONS (6)
  - ANAEMIA MACROCYTIC [None]
  - CYTOMEGALOVIRUS INFECTION [None]
  - IMMUNE RECONSTITUTION SYNDROME [None]
  - LEUKOPENIA [None]
  - MYELODYSPLASTIC SYNDROME [None]
  - RADICULOPATHY [None]
